FAERS Safety Report 4502414-8 (Version None)
Quarter: 2004Q4

REPORT INFORMATION
  Report Type: 
  Country: None (occurrence: None)
  Receive Date: 20041109
  Receipt Date: 20041025
  Transmission Date: 20050328
  Serious: Yes (Death, Hospitalization)
  Sender: FDA-Public Use
  Company Number: 2004-BP-10706BR

PATIENT
  Age: 76 Year
  Sex: Male

DRUGS (1)
  1. SPIRIVA [Suspect]
     Dosage: 18 MCG, IH
     Route: 055
     Dates: start: 20030101, end: 20040101

REACTIONS (1)
  - GASTROINTESTINAL CARCINOMA [None]
